FAERS Safety Report 9369594 (Version 1)
Quarter: 2013Q2

REPORT INFORMATION
  Report Type: Report from Study
  Country: US (occurrence: US)
  Receive Date: 20130626
  Receipt Date: 20130626
  Transmission Date: 20140414
  Serious: Yes (Other)
  Sender: FDA-Public Use
  Company Number: US-ROCHE-1211375

PATIENT
  Sex: Male

DRUGS (2)
  1. PEG-INTERFERON ALFA 2A [Suspect]
     Indication: CHRONIC HEPATITIS C
     Route: 058
     Dates: start: 20130309, end: 201304
  2. RIBAVIRIN [Suspect]
     Indication: CHRONIC HEPATITIS C
     Route: 065
     Dates: start: 20130309, end: 201304

REACTIONS (7)
  - Pulmonary oedema [Unknown]
  - Cough [Unknown]
  - Wheezing [Unknown]
  - Decreased appetite [Recovering/Resolving]
  - Haematochezia [Unknown]
  - Heart rate increased [Unknown]
  - Therapeutic product ineffective [Unknown]
